FAERS Safety Report 5784736-6 (Version None)
Quarter: 2008Q2

REPORT INFORMATION
  Report Type: 
  Country: None (occurrence: None)
  Receive Date: 20080605
  Receipt Date: 20080414
  Transmission Date: 20081010
  Serious: No
  Sender: FDA-Public Use
  Company Number: A0722502A

PATIENT
  Age: 25 Year
  Sex: Female
  Weight: 77 kg

DRUGS (1)
  1. ALLI [Suspect]
     Route: 048
     Dates: start: 20080320

REACTIONS (2)
  - GASTROINTESTINAL DISORDER [None]
  - RECTAL DISCHARGE [None]
